FAERS Safety Report 4673779-1 (Version None)
Quarter: 2005Q2

REPORT INFORMATION
  Report Type: 
  Country: None (occurrence: None)
  Receive Date: 20050525
  Receipt Date: 20050516
  Transmission Date: 20051028
  Serious: Yes (Death)
  Sender: FDA-Public Use
  Company Number: GB-ABBOTT-05P-167-0300671-00

PATIENT
  Sex: Male

DRUGS (6)
  1. KLARICID [Suspect]
     Indication: DRUG USE FOR UNKNOWN INDICATION
  2. ATROVENT [Suspect]
     Indication: DRUG USE FOR UNKNOWN INDICATION
     Dosage: 20 MCG
     Route: 055
  3. AMOXICILLIN [Suspect]
     Indication: DRUG USE FOR UNKNOWN INDICATION
     Route: 042
  4. SALBUTAMOL [Suspect]
     Indication: DRUG USE FOR UNKNOWN INDICATION
  5. DORBANEX [Suspect]
     Indication: DRUG USE FOR UNKNOWN INDICATION
  6. PARACETAMOL [Suspect]
     Indication: DRUG USE FOR UNKNOWN INDICATION

REACTIONS (2)
  - BRONCHIAL CARCINOMA [None]
  - PNEUMONIA [None]
